FAERS Safety Report 21206734 (Version 1)
Quarter: 2022Q3

REPORT INFORMATION
  Report Type: Spontaneous
  Country: CN (occurrence: CN)
  Receive Date: 20220812
  Receipt Date: 20220812
  Transmission Date: 20221027
  Serious: Yes (Life-Threatening)
  Sender: FDA-Public Use
  Company Number: CN-BAYER-2022A112742

PATIENT
  Age: 64 Year
  Sex: Male
  Weight: 65 kg

DRUGS (1)
  1. ULTRAVIST [Suspect]
     Active Substance: IOPROMIDE
     Indication: Imaging procedure
     Dosage: 100 ML, ONCE
     Route: 042
     Dates: start: 20220805, end: 20220805

REACTIONS (5)
  - Chest discomfort [Recovering/Resolving]
  - Tachypnoea [Recovered/Resolved]
  - Pruritus [None]
  - Throat tightness [None]
  - Eye disorder [None]

NARRATIVE: CASE EVENT DATE: 20220805
